FAERS Safety Report 5700338-1 (Version None)
Quarter: 2008Q2

REPORT INFORMATION
  Report Type: 
  Country: None (occurrence: None)
  Receive Date: 20080410
  Receipt Date: 20080331
  Transmission Date: 20081010
  Serious: Yes (Death, Hospitalization)
  Sender: FDA-Public Use
  Company Number: US-PFIZER INC-2007097564

PATIENT
  Sex: Male
  Weight: 68 kg

DRUGS (11)
  1. SUTENT [Suspect]
     Indication: RENAL CELL CARCINOMA
     Route: 048
     Dates: start: 20050727, end: 20071103
  2. ASCORBIC ACID [Concomitant]
     Route: 048
  3. CO-Q-10 [Concomitant]
     Route: 048
     Dates: start: 20040101
  4. VITAMIN CAP [Concomitant]
     Route: 048
     Dates: start: 20050201
  5. FOLIC ACID [Concomitant]
     Route: 048
     Dates: start: 20050901
  6. LIPITOR [Concomitant]
     Route: 048
     Dates: start: 19930101
  7. LOPERAMIDE HYDROCHLORIDE [Concomitant]
     Route: 048
     Dates: start: 20060301
  8. HYOSCYAMINE [Concomitant]
     Route: 048
     Dates: start: 20060501
  9. METOPROLOL TARTRATE [Concomitant]
     Dosage: TEXT:25 MG, XL
     Route: 048
     Dates: start: 20060501
  10. NORVASC [Concomitant]
     Route: 048
     Dates: start: 20061123
  11. MEGACE [Concomitant]
     Route: 048
     Dates: start: 20071018

REACTIONS (2)
  - MALIGNANT ASCITES [None]
  - RENAL FAILURE ACUTE [None]
